FAERS Safety Report 9552951 (Version 1)
Quarter: 2013Q3

REPORT INFORMATION
  Report Type: Spontaneous
  Country: LT (occurrence: LT)
  Receive Date: 20130925
  Receipt Date: 20130925
  Transmission Date: 20140515
  Serious: Yes (Other)
  Sender: FDA-Public Use
  Company Number: LT-JNJFOC-20130913988

PATIENT
  Age: 4 Decade
  Sex: Female

DRUGS (1)
  1. RISPOLEPT CONSTA [Suspect]
     Indication: SCHIZOAFFECTIVE DISORDER
     Route: 030
     Dates: start: 20130816, end: 20130830

REACTIONS (1)
  - Suicidal ideation [Not Recovered/Not Resolved]
